FAERS Safety Report 14755110 (Version 1)
Quarter: 2018Q2

REPORT INFORMATION
  Report Type: Report from Study
  Country: US (occurrence: US)
  Receive Date: 20180413
  Receipt Date: 20180413
  Transmission Date: 20180711
  Serious: Yes (Death)
  Sender: FDA-Public Use
  Company Number: US-ROCHE-2104076

PATIENT
  Sex: Male

DRUGS (2)
  1. OCREVUS [Suspect]
     Active Substance: OCRELIZUMAB
     Dosage: SECOND INFUSION
     Route: 065
     Dates: start: 20171011
  2. OCREVUS [Suspect]
     Active Substance: OCRELIZUMAB
     Indication: PRIMARY PROGRESSIVE MULTIPLE SCLEROSIS
     Dosage: FIRST INFUSION?ON 04/AUG/2017, THE PATIENT WAS PRESCRIBED WITH OCRELIZUMAB INFUSION 300 MG ON DAY 1
     Route: 065
     Dates: start: 201709

REACTIONS (1)
  - Death [Fatal]
